FAERS Safety Report 4465648-7 (Version None)
Quarter: 2004Q3

REPORT INFORMATION
  Report Type: 
  Country: None (occurrence: None)
  Receive Date: 20040930
  Receipt Date: 20040915
  Transmission Date: 20050211
  Serious: Yes (Hospitalization)
  Sender: FDA-Public Use
  Company Number: 2004AL000167

PATIENT
  Age: 40 Year
  Sex: Male

DRUGS (6)
  1. SERAX (OXAZEPAM) TABLETS, 15 MG (ALPHARMA) (SERA [Suspect]
     Dosage: PO
     Route: 048
     Dates: end: 20040524
  2. EQUANIL ({NULL}) [Suspect]
     Dosage: 400 MG;QD;PO
     Route: 048
     Dates: end: 20040524
  3. IMOVANE ({NULL}) [Suspect]
     Dosage: 7.5 MG;QD;PO
     Route: 048
     Dates: end: 20040524
  4. INVIRASE [Concomitant]
  5. COMBIVIR [Concomitant]
  6. TERCIAN [Concomitant]

REACTIONS (4)
  - CONFUSIONAL STATE [None]
  - DEHYDRATION [None]
  - DRUG ABUSER [None]
  - OVERDOSE [None]
